FAERS Safety Report 6651722-3 (Version None)
Quarter: 2010Q1

REPORT INFORMATION
  Report Type: 
  Country: None (occurrence: None)
  Receive Date: 20100325
  Receipt Date: 20100319
  Transmission Date: 20100710
  Serious: Yes (Hospitalization)
  Sender: FDA-Public Use
  Company Number: US-MERCK-0905USA02015

PATIENT
  Age: 60 Year
  Sex: Female
  Weight: 73 kg

DRUGS (10)
  1. FOSAMAX [Suspect]
     Indication: OSTEOPOROSIS
     Route: 048
     Dates: start: 20030201, end: 20060101
  2. FOSAMAX [Suspect]
     Route: 048
     Dates: start: 20030101, end: 20060101
  3. FOSAMAX [Suspect]
     Indication: OSTEOPENIA
     Route: 048
     Dates: start: 20030201, end: 20060101
  4. FOSAMAX [Suspect]
     Route: 048
     Dates: start: 20030101, end: 20060101
  5. SYNTHROID [Concomitant]
     Indication: THYROID HORMONE REPLACEMENT THERAPY
     Route: 065
  6. PREVACID [Concomitant]
     Indication: GASTROOESOPHAGEAL REFLUX DISEASE
     Route: 065
  7. PREMARIN [Concomitant]
     Indication: HORMONE REPLACEMENT THERAPY
     Route: 065
     Dates: start: 19800101
  8. BONIVA [Suspect]
     Indication: OSTEOPOROSIS PROPHYLAXIS
     Route: 065
     Dates: start: 20060901, end: 20090501
  9. ZYRTEC [Concomitant]
     Route: 065
  10. OS-CAL [Concomitant]
     Route: 065

REACTIONS (8)
  - ARTHRALGIA [None]
  - BACK PAIN [None]
  - FEMUR FRACTURE [None]
  - INTERVERTEBRAL DISC PROTRUSION [None]
  - LOW TURNOVER OSTEOPATHY [None]
  - LUMBAR SPINAL STENOSIS [None]
  - OSTEOARTHRITIS [None]
  - TENOSYNOVITIS STENOSANS [None]
